FAERS Safety Report 16661832 (Version 8)
Quarter: 2020Q1

REPORT INFORMATION
  Report Type: Spontaneous
  Country: US (occurrence: US)
  Receive Date: 20190802
  Receipt Date: 20200304
  Transmission Date: 20200409
  Serious: Yes (Hospitalization, Other)
  Sender: FDA-Public Use
  Company Number: US-PFIZER INC-2019313322

PATIENT
  Age: 75 Year
  Sex: Male
  Weight: 119 kg

DRUGS (3)
  1. LYRICA [Suspect]
     Active Substance: PREGABALIN
     Indication: PAIN
     Dosage: 300 MG, DAILY (100 MG (MORNING) AND 200 MG (NIGHT))
     Dates: start: 2016
  2. LYRICA [Suspect]
     Active Substance: PREGABALIN
     Indication: RESTLESS LEGS SYNDROME
     Dosage: 600 MG, DAILY (TWO 100 MG IN THE MORNING AND FOUR 100 MG AT BED TIME)
     Route: 048
  3. LYRICA [Suspect]
     Active Substance: PREGABALIN
     Indication: BACK PAIN
     Dosage: 300 MG, DAILY (6 CAPSULES)
     Route: 048
     Dates: start: 20170628

REACTIONS (8)
  - Dyspnoea [Recovered/Resolved]
  - Malaise [Recovered/Resolved]
  - Pharyngeal swelling [Recovered/Resolved]
  - Yellow skin [Recovered/Resolved]
  - Withdrawal syndrome [Unknown]
  - Loss of consciousness [Recovered/Resolved]
  - Hypersensitivity [Recovered/Resolved]
  - Swollen tongue [Recovered/Resolved]
